FAERS Safety Report 15669431 (Version 1)
Quarter: 2018Q4

REPORT INFORMATION
  Report Type: Spontaneous
  Country: US (occurrence: US)
  Receive Date: 20181129
  Receipt Date: 20181129
  Transmission Date: 20190205
  Serious: No
  Sender: FDA-Public Use
  Company Number: US-TEVA-008134

PATIENT
  Age: 54 Year
  Sex: Female
  Weight: 63.49 kg

DRUGS (3)
  1. CLONAZEPAM. [Concomitant]
     Active Substance: CLONAZEPAM
     Indication: ANXIETY
     Route: 048
  2. MIRTAZAPINE ORALLY DISINTEGRATING TABLETS 15MG,30MG [Suspect]
     Active Substance: MIRTAZAPINE
     Dosage: .5  DAILY; 0.5 TABLET, QD
     Route: 048
     Dates: start: 200606
  3. MIRTAZAPINE ORALLY DISINTEGRATING TABLETS 15MG,30MG [Suspect]
     Active Substance: MIRTAZAPINE
     Indication: DEPRESSION
     Dosage: 1  DAILY; 1 TABLET, QD
     Route: 048
     Dates: start: 20040831, end: 200606

REACTIONS (7)
  - Insomnia [Not Recovered/Not Resolved]
  - Tongue discomfort [Not Recovered/Not Resolved]
  - Hypoaesthesia oral [Not Recovered/Not Resolved]
  - Hypersensitivity [Not Recovered/Not Resolved]
  - Dizziness [Recovered/Resolved]
  - Ear discomfort [Recovered/Resolved]
  - Glossodynia [Unknown]

NARRATIVE: CASE EVENT DATE: 20060722
